FAERS Safety Report 7071967-0 (Version None)
Quarter: 2010Q4

REPORT INFORMATION
  Report Type: 
  Country: None (occurrence: None)
  Receive Date: 20101029
  Receipt Date: 20091111
  Transmission Date: 20110411
  Serious: No
  Sender: FDA-Public Use
  Company Number: A0816520A

PATIENT
  Age: 83 Year
  Sex: Male

DRUGS (6)
  1. ADVAIR DISKUS 100/50 [Suspect]
     Indication: CHRONIC OBSTRUCTIVE PULMONARY DISEASE
     Dosage: 1PUFF TWICE PER DAY
     Route: 055
     Dates: start: 20090701
  2. PILOCARPINE [Concomitant]
  3. BRIMONIDINE [Concomitant]
  4. LUMIGAN [Concomitant]
  5. DETROL LA [Concomitant]
  6. THEOPHYLLINE [Concomitant]

REACTIONS (3)
  - CANDIDIASIS [None]
  - DYSPHONIA [None]
  - THROAT IRRITATION [None]
